FAERS Safety Report 4587917-2 (Version None)
Quarter: 2005Q1

REPORT INFORMATION
  Report Type: 
  Country: None (occurrence: None)
  Receive Date: 20050219
  Receipt Date: 20021216
  Transmission Date: 20050727
  Serious: Yes (Hospitalization)
  Sender: FDA-Public Use
  Company Number: PHHO2002US10244

PATIENT
  Age: 66 Year
  Sex: Male
  Weight: 81 kg

DRUGS (9)
  1. ZOMETA [Suspect]
     Indication: METASTASES TO BONE
     Dosage: 4 MG, QMO
  2. ZOLADEX [Concomitant]
  3. LETROX [Concomitant]
  4. CASODEX [Concomitant]
     Indication: PROSTATE CANCER METASTATIC
     Dosage: 50 MG, QD
     Route: 048
     Dates: start: 20021001
  5. NEURONTIN [Concomitant]
     Indication: PELVIC PAIN
     Dates: start: 20021001
  6. LUPRON [Concomitant]
     Indication: PROSTATE CANCER METASTATIC
     Dosage: 7.5MG EVERY MONTH
     Route: 030
     Dates: start: 20020930
  7. VITAMIN D [Concomitant]
  8. CALCIUM GLUCONATE [Concomitant]
  9. ZOLEDRONATE [Suspect]
     Indication: OSTEOPOROSIS
     Dosage: UNK, TIW
     Route: 042
     Dates: start: 20021119

REACTIONS (6)
  - CULTURE POSITIVE [None]
  - DISEASE PROGRESSION [None]
  - GROIN ABSCESS [None]
  - INFECTION [None]
  - MYOSITIS [None]
  - OSTEOMYELITIS [None]
